FAERS Safety Report 14022701 (Version 5)
Quarter: 2019Q2

REPORT INFORMATION
  Report Type: Spontaneous
  Country: US (occurrence: US)
  Receive Date: 20170928
  Receipt Date: 20190409
  Transmission Date: 20190711
  Serious: Yes (Hospitalization, Other)
  Sender: FDA-Public Use
  Company Number: US-SA-2016SA171657

PATIENT
  Age: 59 Year
  Sex: Female
  Weight: 77.1 kg

DRUGS (5)
  1. AUBAGIO [Suspect]
     Active Substance: TERIFLUNOMIDE
     Indication: MULTIPLE SCLEROSIS
     Dosage: 14 MG,QD
     Route: 048
     Dates: start: 20160531
  2. AUBAGIO [Suspect]
     Active Substance: TERIFLUNOMIDE
     Dosage: 1 DF, QD
     Route: 048
  3. AUBAGIO [Suspect]
     Active Substance: TERIFLUNOMIDE
     Dosage: 14 MG,QD
     Route: 048
     Dates: start: 20160531
  4. AUBAGIO [Suspect]
     Active Substance: TERIFLUNOMIDE
     Dosage: 14 UNK
     Route: 048
  5. AUBAGIO [Suspect]
     Active Substance: TERIFLUNOMIDE
     Dosage: 2 TABLETS IN 1 DAY
     Dates: start: 20180604, end: 20180615

REACTIONS (7)
  - Blood bilirubin decreased [Unknown]
  - Hospitalisation [Unknown]
  - Diplopia [Recovered/Resolved with Sequelae]
  - Multiple sclerosis relapse [Unknown]
  - Dehydration [Unknown]
  - Trigeminal neuralgia [Recovered/Resolved with Sequelae]
  - Product use issue [Unknown]

NARRATIVE: CASE EVENT DATE: 20180604
